FAERS Safety Report 9869213 (Version 1)
Quarter: 2014Q1

REPORT INFORMATION
  Report Type: Spontaneous
  Country: GB (occurrence: GB)
  Receive Date: 20140205
  Receipt Date: 20140205
  Transmission Date: 20141002
  Serious: Yes (Other)
  Sender: FDA-Public Use
  Company Number: GB-RANBAXY-2014R1-77608

PATIENT
  Age: 83 Year
  Sex: Male

DRUGS (11)
  1. SERTRALINE [Suspect]
     Indication: IMPULSE-CONTROL DISORDER
     Dosage: UNK
     Route: 048
     Dates: start: 20131206, end: 20131220
  2. CLONAZEPAM [Concomitant]
     Indication: SLEEP DISORDER
     Dosage: 0.5MG
     Route: 048
     Dates: start: 201309
  3. MADOPAR [Concomitant]
     Indication: PARKINSON^S DISEASE
     Dosage: 62.5MG
     Route: 048
     Dates: end: 20131014
  4. CO-AMILOFRUSE [Concomitant]
     Indication: PRODUCT USED FOR UNKNOWN INDICATION
     Dosage: 5MG/40MG
     Route: 048
  5. LANSOPRAZOLE [Concomitant]
     Indication: PRODUCT USED FOR UNKNOWN INDICATION
     Dosage: UNK
     Route: 065
     Dates: start: 20131206
  6. LEVOTHYROXINE [Concomitant]
     Indication: PRODUCT USED FOR UNKNOWN INDICATION
     Dosage: 125 ?G, QD
     Route: 065
  7. GABAPENTIN [Concomitant]
     Indication: PRODUCT USED FOR UNKNOWN INDICATION
     Dosage: 100 MG, BID
     Route: 065
  8. SIMVASTATIN [Concomitant]
     Indication: PRODUCT USED FOR UNKNOWN INDICATION
     Dosage: 20 MG, QD
     Route: 065
  9. MOVICOL [Concomitant]
     Indication: PRODUCT USED FOR UNKNOWN INDICATION
     Dosage: UNK
     Route: 065
  10. CO-CODAMOL [Concomitant]
     Indication: PRODUCT USED FOR UNKNOWN INDICATION
     Dosage: 8/500MG
     Route: 065
  11. INFLUENZA VIRUS [Concomitant]
     Indication: INFLUENZA IMMUNISATION
     Dosage: UNK
     Route: 065
     Dates: start: 20130928, end: 20130928

REACTIONS (4)
  - Swollen tongue [Recovered/Resolved]
  - Oedema mouth [Recovered/Resolved]
  - Abnormal dreams [Recovered/Resolved]
  - Condition aggravated [Unknown]
